FAERS Safety Report 6053242-6 (Version None)
Quarter: 2009Q1

REPORT INFORMATION
  Report Type: 
  Country: None (occurrence: None)
  Receive Date: 20090127
  Receipt Date: 20090121
  Transmission Date: 20090719
  Serious: Yes (Hospitalization)
  Sender: FDA-Public Use
  Company Number: US-AVENTIS-200910543US

PATIENT
  Sex: Female

DRUGS (8)
  1. ARAVA [Suspect]
     Dosage: DOSE QUANTITY: 1
     Dates: start: 20080619, end: 20080701
  2. TOCOPHEROL CONCENTRATE CAP [Concomitant]
     Dosage: DOSE: UNK
  3. CYANOCOBALAMIN [Concomitant]
     Dosage: DOSE: UNK
  4. MULTI-VITAMINS [Concomitant]
     Dosage: DOSE: UNK
     Dates: start: 19980101
  5. VESICARE                           /01735901/ [Concomitant]
     Dosage: DOSE: UNK
     Dates: start: 20040101
  6. GLUCOSAMINE [Concomitant]
     Dosage: DOSE: UNK
     Dates: start: 19980101
  7. CALCIUM [Concomitant]
     Dosage: DOSE: UNK
  8. UNKNOWN DRUG [Concomitant]
     Dosage: DOSE: UNK
     Dates: start: 19980101

REACTIONS (1)
  - CHEST PAIN [None]
